FAERS Safety Report 23264252 (Version 1)
Quarter: 2023Q4

REPORT INFORMATION
  Report Type: Spontaneous
  Country: ES (occurrence: ES)
  Receive Date: 20231205
  Receipt Date: 20231205
  Transmission Date: 20240110
  Serious: Yes (Other)
  Sender: FDA-Public Use
  Company Number: None

PATIENT
  Age: 6 Year
  Sex: Male

DRUGS (1)
  1. PROPOFOL [Suspect]
     Active Substance: PROPOFOL
     Indication: Infant sedation
     Dosage: FORM OF ADMIN.- EMULSION FOR INJECTION/INFUSION ?ROUTE OF ADMIN.- INTRAVENOUS (NOT OTHERWISE SPECIFI
     Route: 042
     Dates: start: 20231110, end: 20231110

REACTIONS (2)
  - Paradoxical drug reaction [Recovered/Resolved]
  - Agitation [Recovered/Resolved]

NARRATIVE: CASE EVENT DATE: 20231110
